FAERS Safety Report 6924411-5 (Version None)
Quarter: 2010Q3

REPORT INFORMATION
  Report Type: 
  Country: None (occurrence: None)
  Receive Date: 20100803
  Receipt Date: 20100719
  Transmission Date: 20110219
  Serious: Yes (Other)
  Sender: FDA-Public Use
  Company Number: OMX-2010-00057

PATIENT
  Age: 53 Year
  Sex: Female

DRUGS (2)
  1. EVICEL [Suspect]
     Indication: HAEMOSTASIS
     Dates: start: 20100630
  2. PRESSURE REGULATOR [Concomitant]

REACTIONS (7)
  - HAEMATOCRIT DECREASED [None]
  - HAEMOGLOBIN DECREASED [None]
  - MEAN CELL HAEMOGLOBIN CONCENTRATION DECREASED [None]
  - MEAN CELL HAEMOGLOBIN DECREASED [None]
  - NAUSEA [None]
  - RED BLOOD CELL COUNT DECREASED [None]
  - VOMITING [None]
